FAERS Safety Report 24153016 (Version 6)
Quarter: 2024Q3

REPORT INFORMATION
  Report Type: Spontaneous
  Country: US (occurrence: US)
  Receive Date: 20240730
  Receipt Date: 20240930
  Transmission Date: 20241017
  Serious: No
  Sender: PFIZER
  Company Number: US-PFIZER INC-202400222153

PATIENT
  Age: 11 Year
  Sex: Male
  Weight: 45.81 kg

DRUGS (3)
  1. GENOTROPIN [Suspect]
     Active Substance: SOMATROPIN
     Indication: Growth disorder
     Dosage: 1.2 MG, DAILY; INJECTION THROUGH LEG OR STOMACH
     Dates: start: 2023
  2. GENOTROPIN [Suspect]
     Active Substance: SOMATROPIN
     Dosage: 1 MG, DAILY
  3. GUANFACINE [Concomitant]
     Active Substance: GUANFACINE
     Indication: Attention deficit hyperactivity disorder
     Dosage: DAILY; NOT SURE OF THE TABLET STRENGTH. IT^S EITHER A 2MG OR 3MG TABLET DAILY BY MOUTH

REACTIONS (4)
  - Device mechanical issue [Unknown]
  - Device use error [Unknown]
  - Device physical property issue [Unknown]
  - Drug dose omission by device [Unknown]
